FAERS Safety Report 15067076 (Version 1)
Quarter: 2018Q2

REPORT INFORMATION
  Report Type: Spontaneous
  Country: US (occurrence: US)
  Receive Date: 20180626
  Receipt Date: 20180626
  Transmission Date: 20180711
  Serious: Yes (Hospitalization, Other)
  Sender: FDA-Public Use
  Company Number: US-GLAXOSMITHKLINE-US2018112024

PATIENT
  Age: 66 Year
  Sex: Female

DRUGS (20)
  1. VENTOLIN HFA [Concomitant]
     Active Substance: ALBUTEROL SULFATE
  2. LOMOTIL (ATROPINE + DIPHENOXYLATE) [Concomitant]
  3. OXYGEN. [Concomitant]
     Active Substance: OXYGEN
  4. ALLEGRA [Concomitant]
     Active Substance: FEXOFENADINE HYDROCHLORIDE
  5. COREG [Concomitant]
     Active Substance: CARVEDILOL
  6. HYOSCYAMINE. [Concomitant]
     Active Substance: HYOSCYAMINE
  7. KEFLEX [Concomitant]
     Active Substance: CEPHALEXIN
  8. LASIX [Concomitant]
     Active Substance: FUROSEMIDE
     Dosage: UNK, PRN
  9. INCRUSE ELLIPTA [Suspect]
     Active Substance: UMECLIDINIUM BROMIDE
     Indication: ASTHMA
     Dosage: 1 PUFF(S), QD
     Route: 055
     Dates: start: 2016
  10. DEXILANT [Concomitant]
     Active Substance: DEXLANSOPRAZOLE
  11. BREO ELLIPTA [Suspect]
     Active Substance: FLUTICASONE FUROATE\VILANTEROL TRIFENATATE
     Indication: CHRONIC OBSTRUCTIVE PULMONARY DISEASE
  12. BUPROPION ER [Concomitant]
     Active Substance: BUPROPION
  13. ATORVASTATIN [Concomitant]
     Active Substance: ATORVASTATIN
  14. METFORMIN [Concomitant]
     Active Substance: METFORMIN HYDROCHLORIDE
  15. BREO ELLIPTA [Suspect]
     Active Substance: FLUTICASONE FUROATE\VILANTEROL TRIFENATATE
     Indication: ASTHMA
     Dosage: 1 PUFF(S), QD
     Route: 055
     Dates: start: 2015
  16. LISINOPRIL. [Concomitant]
     Active Substance: LISINOPRIL
  17. PRAMIPEXOLE. [Concomitant]
     Active Substance: PRAMIPEXOLE
  18. INCRUSE ELLIPTA [Suspect]
     Active Substance: UMECLIDINIUM BROMIDE
     Indication: CHRONIC OBSTRUCTIVE PULMONARY DISEASE
  19. ALBUTEROL SULFATE. [Concomitant]
     Active Substance: ALBUTEROL SULFATE
  20. DULOXETINE. [Concomitant]
     Active Substance: DULOXETINE

REACTIONS (10)
  - Increased bronchial secretion [Recovered/Resolved]
  - Intentional underdose [Unknown]
  - Gait disturbance [Unknown]
  - Dyspnoea [Not Recovered/Not Resolved]
  - Oxygen saturation decreased [Unknown]
  - Ill-defined disorder [Unknown]
  - Product use in unapproved indication [Unknown]
  - Gastrointestinal haemorrhage [Recovered/Resolved]
  - Intentional product misuse [Unknown]
  - Product use issue [Unknown]

NARRATIVE: CASE EVENT DATE: 201806
